FAERS Safety Report 8220800-X (Version None)
Quarter: 2012Q1

REPORT INFORMATION
  Report Type: 
  Country: None (occurrence: None)
  Receive Date: 20120319
  Receipt Date: 20120206
  Transmission Date: 20120608
  Serious: Yes (Other)
  Sender: FDA-Public Use
  Company Number: PHHY2012KR001577

PATIENT
  Sex: Female
  Weight: 45 kg

DRUGS (2)
  1. EXJADE [Suspect]
     Indication: IRON OVERLOAD
     Route: 048
     Dates: start: 20070702
  2. EXJADE [Suspect]
     Indication: APLASTIC ANAEMIA

REACTIONS (1)
  - CYSTITIS [None]
